FAERS Safety Report 25137620 (Version 4)
Quarter: 2025Q3

REPORT INFORMATION
  Report Type: Spontaneous
  Country: EU (occurrence: EU)
  Receive Date: 20250329
  Receipt Date: 20250709
  Transmission Date: 20251021
  Serious: Yes (Death, Life-Threatening, Other)
  Sender: AUROBINDO
  Company Number: EU-BoehringerIngelheim-2025-BI-014553

PATIENT
  Age: 61 Year
  Sex: Female
  Weight: 65.2 kg

DRUGS (2)
  1. DOCETAXEL [Suspect]
     Active Substance: DOCETAXEL
     Indication: Lung adenocarcinoma
     Dosage: 75 MILLIGRAM/SQ. METER, ONCE A DAY (FORM OF ADMIN.: LIQUID)
     Route: 042
     Dates: start: 20230113, end: 20230224
  2. NINTEDANIB [Suspect]
     Active Substance: NINTEDANIB
     Indication: Lung adenocarcinoma
     Dosage: 200 MILLIGRAM, TWO TIMES A DAY
     Route: 048
     Dates: start: 20230114

REACTIONS (2)
  - Leukopenia [Fatal]
  - Malignant neoplasm progression [Fatal]

NARRATIVE: CASE EVENT DATE: 20230203
